FAERS Safety Report 4686275-2 (Version None)
Quarter: 2005Q2

REPORT INFORMATION
  Report Type: 
  Country: None (occurrence: None)
  Receive Date: 20050609
  Receipt Date: 20050525
  Transmission Date: 20051028
  Serious: Yes (Hospitalization)
  Sender: FDA-Public Use
  Company Number: DE-GLAXOSMITHKLINE-D0046681A

PATIENT
  Age: 55 Year
  Sex: Female

DRUGS (2)
  1. LAMICTAL [Suspect]
     Indication: EPILEPSY
     Route: 048
     Dates: start: 19980101
  2. VALPROIC ACID [Concomitant]
     Indication: EPILEPSY
     Route: 048

REACTIONS (5)
  - HAEMOGLOBINURIA [None]
  - PARAPROTEINAEMIA [None]
  - PLASMACYTOMA [None]
  - PORTAL VEIN OCCLUSION [None]
  - RENAL FAILURE [None]
